FAERS Safety Report 13255179 (Version 2)
Quarter: 2017Q2

REPORT INFORMATION
  Report Type: Spontaneous
  Country: NL (occurrence: NL)
  Receive Date: 20170221
  Receipt Date: 20170606
  Transmission Date: 20170830
  Serious: Yes (Hospitalization)
  Sender: FDA-Public Use
  Company Number: NL-TEVA-742068ACC

PATIENT
  Age: 69 Year
  Sex: Female

DRUGS (8)
  1. METFORMIN [Suspect]
     Active Substance: METFORMIN HYDROCHLORIDE
     Indication: TYPE 2 DIABETES MELLITUS
     Dosage: 850 MILLIGRAM DAILY;
     Route: 048
     Dates: end: 201601
  2. COLECALCIFEROL CAPSULE  400IE [Concomitant]
     Dosage: 800 IU (INTERNATIONAL UNIT) DAILY;
     Route: 048
  3. AMLODIPINE TABLET 10MG [Concomitant]
     Dosage: 10 MILLIGRAM DAILY;
     Route: 048
  4. SIMVASTATINE TABLET 40MG [Concomitant]
     Dosage: 40 MILLIGRAM DAILY;
     Route: 048
  5. SITAGLIPTINE TABLET 100MG [Concomitant]
     Dosage: 100 MILLIGRAM DAILY;
     Route: 048
  6. METOPROLOL TABLET MGA  50MG (SUCCINAAT) [Concomitant]
     Dosage: 50 MILLIGRAM DAILY;
     Route: 048
  7. PERINDOPRIL TABLET 4MG (ERBUMINE) [Concomitant]
     Dosage: 4 MILLIGRAM DAILY;
     Route: 048
  8. GLICLAZIDE TABLET MGA 30MG [Concomitant]
     Active Substance: GLICLAZIDE
     Dosage: 120 MILLIGRAM DAILY;
     Route: 048

REACTIONS (7)
  - Malaise [Recovered/Resolved]
  - Renal impairment [Recovered/Resolved]
  - Diarrhoea [Recovered/Resolved]
  - Hyperventilation [Recovered/Resolved]
  - Vomiting [Recovered/Resolved]
  - Lactic acidosis [Recovered/Resolved]
  - Sluggishness [Recovered/Resolved]

NARRATIVE: CASE EVENT DATE: 201701
